FAERS Safety Report 23628102 (Version 2)
Quarter: 2024Q2

REPORT INFORMATION
  Report Type: Spontaneous
  Country: BR (occurrence: BR)
  Receive Date: 20240313
  Receipt Date: 20240424
  Transmission Date: 20240716
  Serious: Yes (Other)
  Sender: FDA-Public Use
  Company Number: BR-BAXTER-2024BAX014548

PATIENT
  Age: 37 Year
  Sex: Female

DRUGS (2)
  1. IRON [Suspect]
     Active Substance: IRON
     Indication: Anaemia
     Dosage: 2 AMPOULES DILUTED IN 250 ML OF SALINE SOLUTION ONCE A DAY
     Route: 042
  2. SODIUM CHLORIDE [Suspect]
     Active Substance: SODIUM CHLORIDE
     Indication: Medication dilution
     Dosage: 250 ML SALINE SOLUTION USED TO DILUTE 2 AMPOULE OF SUCROFER ONCE A DAY
     Route: 042

REACTIONS (5)
  - Syncope [Recovered/Resolved]
  - Hypersensitivity [Recovered/Resolved]
  - Pruritus [Recovered/Resolved]
  - Erythema [Recovered/Resolved]
  - Skin plaque [Recovered/Resolved]

NARRATIVE: CASE EVENT DATE: 20231106
